FAERS Safety Report 21341214 (Version 1)
Quarter: 2022Q3

REPORT INFORMATION
  Report Type: Spontaneous
  Country: US (occurrence: US)
  Receive Date: 20220916
  Receipt Date: 20220916
  Transmission Date: 20221027
  Serious: Yes (Other)
  Sender: FDA-Public Use
  Company Number: US-CIPLA LTD.-2022US05500

PATIENT
  Age: 66 Year
  Sex: Male

DRUGS (8)
  1. AZACITIDINE [Suspect]
     Active Substance: AZACITIDINE
     Indication: Blastic plasmacytoid dendritic cell neoplasia
     Dosage: 75 MG/M2 X 7 DAYS, (CYCLE 1?2)
     Route: 065
  2. AZACITIDINE [Suspect]
     Active Substance: AZACITIDINE
     Dosage: 75 MG/M2, DAY 1?5 (CYCLE 3?5)
     Route: 065
  3. AZACITIDINE [Suspect]
     Active Substance: AZACITIDINE
     Dosage: 75 MG/M2 DAY 1?7 (CYCLE 6)
     Route: 065
  4. AZACITIDINE [Suspect]
     Active Substance: AZACITIDINE
     Dosage: UNK, CYCLE 7
     Route: 065
  5. VENETOCLAX [Suspect]
     Active Substance: VENETOCLAX
     Indication: Blastic plasmacytoid dendritic cell neoplasia
     Dosage: 400 MG DAILY X 28 DAYS (CYCLE 1?2),
     Route: 065
  6. VENETOCLAX [Suspect]
     Active Substance: VENETOCLAX
     Dosage: 100 MG X 14 DAYS (CYCLE 3?5)
     Route: 065
  7. VENETOCLAX [Suspect]
     Active Substance: VENETOCLAX
     Dosage: 100 MG, 28 DAYS (CYCLE 6)
     Route: 065
  8. VENETOCLAX [Suspect]
     Active Substance: VENETOCLAX
     Dosage: UNK, CYCLE 7
     Route: 065

REACTIONS (2)
  - Tuberculosis [Unknown]
  - Cytopenia [Unknown]
